FAERS Safety Report 9420091 (Version 2)
Quarter: 2013Q3

REPORT INFORMATION
  Report Type: Spontaneous
  Country: US (occurrence: US)
  Receive Date: 20130725
  Receipt Date: 20130827
  Transmission Date: 20140515
  Serious: Yes (Hospitalization)
  Sender: FDA-Public Use
  Company Number: US-PFIZER INC-2013213542

PATIENT
  Age: 74 Year
  Sex: Male
  Weight: 93.44 kg

DRUGS (24)
  1. XALKORI [Suspect]
     Indication: NON-SMALL CELL LUNG CANCER
     Dosage: 250 MG, 2X/DAY (FOR 13 MONTHS)
     Route: 048
     Dates: start: 20121211
  2. COUMADINE [Concomitant]
  3. DIOVAN (VALSARTAN) [Concomitant]
  4. METOPROLOL [Concomitant]
  5. LIPITOR [Concomitant]
  6. ACETAMINOPHEN [Concomitant]
  7. FIORICET [Concomitant]
  8. BISACODYL [Concomitant]
  9. CELEXA [Concomitant]
  10. COLCHICINE [Concomitant]
  11. PROBENECID [Concomitant]
  12. DOCUSATE [Concomitant]
  13. SENNA [Concomitant]
  14. IBUPROFEN [Concomitant]
  15. INDOMETHACIN [Concomitant]
  16. LACTULOSE [Concomitant]
  17. MAGNESIUM HYDROXIDE [Concomitant]
  18. MIRALAX [Concomitant]
  19. PANTOPRAZOLE [Concomitant]
  20. TAMSULOSIN [Concomitant]
  21. TRAZODONE [Concomitant]
  22. ULTRAM [Concomitant]
  23. ZOFRAN [Concomitant]
  24. HYDROCHLOROTHIAZIDE [Concomitant]

REACTIONS (2)
  - Cerebrovascular accident [Not Recovered/Not Resolved]
  - International normalised ratio decreased [Unknown]
